FAERS Safety Report 6368989-1 (Version None)
Quarter: 2009Q3

REPORT INFORMATION
  Report Type: 
  Country: None (occurrence: None)
  Receive Date: 20090922
  Receipt Date: 20090914
  Transmission Date: 20100115
  Serious: Yes (Death, Other)
  Sender: FDA-Public Use
  Company Number: JP-ABBOTT-09P-087-0593895-00

PATIENT
  Sex: Female
  Weight: 39 kg

DRUGS (11)
  1. HUMIRA [Suspect]
     Indication: RHEUMATOID ARTHRITIS
     Route: 058
     Dates: start: 20080818, end: 20090706
  2. PREDNISONE [Suspect]
     Indication: RHEUMATOID ARTHRITIS
     Route: 048
  3. PREDNISONE [Suspect]
     Indication: LIVER DISORDER
     Route: 048
  4. METHOTREXATE [Suspect]
     Indication: RHEUMATOID ARTHRITIS
     Route: 048
  5. BROTIZOLAM [Concomitant]
     Indication: INSOMNIA
     Route: 048
  6. BROTIZOLAM [Concomitant]
     Indication: PROPHYLAXIS
  7. TEPRENONE [Concomitant]
     Indication: GASTRITIS PROPHYLAXIS
  8. FAMOTIDINE [Concomitant]
     Indication: GASTRITIS PROPHYLAXIS
     Route: 048
  9. FOLIC ACID [Concomitant]
     Indication: PROPHYLAXIS
     Route: 048
  10. FOLIC ACID [Concomitant]
     Indication: FOLATE DEFICIENCY
  11. ALFACALCIDOL [Concomitant]
     Indication: OSTEOPOROSIS PROPHYLAXIS
     Route: 048

REACTIONS (13)
  - ATRIAL FIBRILLATION [None]
  - COMA [None]
  - DECREASED APPETITE [None]
  - DELIRIUM [None]
  - HEPATIC FAILURE [None]
  - HEPATITIS B [None]
  - HEPATITIS FULMINANT [None]
  - LIVER FUNCTION TEST ABNORMAL [None]
  - MALAISE [None]
  - PULMONARY CONGESTION [None]
  - RENAL FAILURE [None]
  - SEPSIS [None]
  - TACHYCARDIA [None]
